FAERS Safety Report 4600016-6 (Version None)
Quarter: 2005Q1

REPORT INFORMATION
  Report Type: 
  Country: None (occurrence: None)
  Receive Date: 20050307
  Receipt Date: 20050302
  Transmission Date: 20050727
  Serious: Yes (Life-Threatening, Hospitalization)
  Sender: FDA-Public Use
  Company Number: PHNU2005DE01148

PATIENT
  Age: 33 Year
  Sex: Male

DRUGS (5)
  1. CLOZARIL [Suspect]
     Indication: SCHIZOPHRENIA
     Dosage: 12.5 TO 100 MG
     Route: 048
     Dates: start: 20001113, end: 20001119
  2. CLOZARIL [Suspect]
     Dosage: 200 MG/DAY
     Route: 048
     Dates: start: 20001120, end: 20001204
  3. RISPERDAL [Concomitant]
     Indication: SCHIZOPHRENIA
     Dosage: 4 TO 6 MG
     Route: 048
     Dates: start: 20001109, end: 20001204
  4. TAVOR [Concomitant]
     Dosage: 3 MG/DAY
     Route: 048
     Dates: start: 20001109, end: 20001204
  5. CONVULEX ^BYK GULDEN^ [Concomitant]
     Dosage: 600-1200 MG
     Route: 048
     Dates: start: 20001109, end: 20001129

REACTIONS (16)
  - AGITATION [None]
  - BLOOD CREATININE INCREASED [None]
  - BLOOD IMMUNOGLOBULIN E INCREASED [None]
  - BLOOD UREA INCREASED [None]
  - BRONCHOSPASM [None]
  - DIARRHOEA [None]
  - EOSINOPHILIA [None]
  - HYPERSENSITIVITY [None]
  - INFECTION [None]
  - INTUBATION [None]
  - NEPHRITIS INTERSTITIAL [None]
  - PYREXIA [None]
  - RENAL FAILURE ACUTE [None]
  - RENAL FUNCTION TEST ABNORMAL [None]
  - RESPIRATORY FAILURE [None]
  - SEPSIS [None]
